FAERS Safety Report 19450897 (Version 1)
Quarter: 2021Q2

REPORT INFORMATION
  Report Type: Spontaneous
  Country: US (occurrence: US)
  Receive Date: 20210622
  Receipt Date: 20210622
  Transmission Date: 20210717
  Serious: Yes (Disabling)
  Sender: FDA-Public Use
  Company Number: US-PFIZER INC-2021672757

PATIENT
  Age: 70 Year
  Sex: Female
  Weight: 97.07 kg

DRUGS (1)
  1. METHYLPREDNISOLONE ACETATE. [Suspect]
     Active Substance: METHYLPREDNISOLONE ACETATE
     Indication: BACK PAIN
     Dosage: UNK
     Route: 008
     Dates: start: 201912

REACTIONS (10)
  - Product administered at inappropriate site [Unknown]
  - Pain [Recovered/Resolved]
  - Mental disorder [Unknown]
  - Nerve injury [Unknown]
  - Intervertebral disc protrusion [Unknown]
  - Arachnoiditis [Unknown]
  - Drug ineffective for unapproved indication [Unknown]
  - Depression [Unknown]
  - Weight increased [Unknown]
  - Off label use [Unknown]

NARRATIVE: CASE EVENT DATE: 201912
